FAERS Safety Report 8153820-4 (Version None)
Quarter: 2012Q1

REPORT INFORMATION
  Report Type: 
  Country: None (occurrence: None)
  Receive Date: 20120221
  Receipt Date: 20111226
  Transmission Date: 20120608
  Serious: Yes (Life-Threatening, Hospitalization, Disabling, Other)
  Sender: FDA-Public Use
  Company Number: PH-GLAXOSMITHKLINE-B0782607A

PATIENT
  Age: 50 Year
  Sex: Male

DRUGS (2)
  1. ROTAHALER [Suspect]
     Indication: PRODUCT USED FOR UNKNOWN INDICATION
     Route: 065
  2. VENTOLIN [Suspect]
     Indication: PRODUCT USED FOR UNKNOWN INDICATION
     Route: 055

REACTIONS (8)
  - DYSPNOEA [None]
  - CORNEAL LIGHT REFLEX TEST ABNORMAL [None]
  - ASTHMA [None]
  - MEDICAL DEVICE COMPLICATION [None]
  - HYPORESPONSIVE TO STIMULI [None]
  - BRONCHIAL OBSTRUCTION [None]
  - CARDIO-RESPIRATORY ARREST [None]
  - ENDOTRACHEAL INTUBATION [None]
